FAERS Safety Report 7155994-0 (Version None)
Quarter: 2010Q4

REPORT INFORMATION
  Report Type: 
  Country: None (occurrence: None)
  Receive Date: 20101123
  Receipt Date: 20101005
  Transmission Date: 20110411
  Serious: Yes (Hospitalization)
  Sender: FDA-Public Use
  Company Number: 018858

PATIENT
  Sex: Female
  Weight: 75.7 kg

DRUGS (10)
  1. CIMZIA [Suspect]
     Indication: CROHN'S DISEASE
     Dosage: 400 MG1X/4 WEEKS SUBCUTANEOUS
     Route: 058
     Dates: start: 20100806
  2. PREDNISONE [Concomitant]
  3. IRON [Concomitant]
  4. REMICADE [Concomitant]
  5. VITAMIN D3 [Concomitant]
  6. OMEPRAZOLE [Concomitant]
  7. ELMIRON [Concomitant]
  8. LISINOPRIL AND HYDROCHLOROTHIAZIDE [Concomitant]
  9. APRI [Concomitant]
  10. AZATHIOPRINE [Concomitant]

REACTIONS (2)
  - ARTHRALGIA [None]
  - CROHN'S DISEASE [None]
